FAERS Safety Report 14596547 (Version 1)
Quarter: 2018Q1

REPORT INFORMATION
  Report Type: Spontaneous
  Country: GB (occurrence: GB)
  Receive Date: 20180304
  Receipt Date: 20180304
  Transmission Date: 20180509
  Serious: Yes (Death)
  Sender: FDA-Public Use
  Company Number: GB-DEXPHARM-20180107

PATIENT
  Sex: Male

DRUGS (1)
  1. OMEPRAZOLE. [Suspect]
     Active Substance: OMEPRAZOLE
     Route: 065

REACTIONS (1)
  - Cardiac failure [Fatal]
